FAERS Safety Report 22355798 (Version 1)
Quarter: 2023Q2

REPORT INFORMATION
  Report Type: Spontaneous
  Country: ES (occurrence: ES)
  Receive Date: 20230523
  Receipt Date: 20230523
  Transmission Date: 20230721
  Serious: Yes (Death)
  Sender: FDA-Public Use
  Company Number: ES-SUN PHARMACEUTICAL INDUSTRIES LTD-2023RR-389641

PATIENT
  Age: 19 Year
  Sex: Male

DRUGS (2)
  1. TRABECTEDIN [Suspect]
     Active Substance: TRABECTEDIN
     Indication: Liposarcoma
     Dosage: X14 CYCLES
     Route: 065
     Dates: start: 200703, end: 200803
  2. DOXORUBICIN [Interacting]
     Active Substance: DOXORUBICIN
     Indication: Liposarcoma
     Dosage: UNK
     Route: 065

REACTIONS (5)
  - Therapeutic product effect incomplete [Fatal]
  - Disease progression [Fatal]
  - Disease recurrence [Fatal]
  - Hepatic enzyme increased [Fatal]
  - Blood creatine phosphokinase increased [Fatal]

NARRATIVE: CASE EVENT DATE: 20170601
